FAERS Safety Report 9584984 (Version 1)
Quarter: 2013Q4

REPORT INFORMATION
  Report Type: Spontaneous
  Country: US (occurrence: US)
  Receive Date: 20131002
  Receipt Date: 20131002
  Transmission Date: 20140711
  Serious: No
  Sender: FDA-Public Use
  Company Number: US-AMGEN-USASP2013056865

PATIENT
  Age: 62 Year
  Sex: Male
  Weight: 104.31 kg

DRUGS (3)
  1. ENBREL [Suspect]
     Indication: PRODUCT USED FOR UNKNOWN INDICATION
     Dosage: 50 MG, 2 TIMES/WK
     Route: 058
     Dates: start: 20130726, end: 201308
  2. CLOBETASOL [Concomitant]
     Dosage: UNK
  3. ASA [Concomitant]
     Dosage: 81 MG, UNK

REACTIONS (2)
  - Productive cough [Unknown]
  - Pyrexia [Unknown]
